FAERS Safety Report 23592959 (Version 2)
Quarter: 2024Q2

REPORT INFORMATION
  Report Type: Spontaneous
  Country: US (occurrence: US)
  Receive Date: 20240304
  Receipt Date: 20240409
  Transmission Date: 20240715
  Serious: Yes (Other)
  Sender: FDA-Public Use
  Company Number: US-PFIZER INC-PV202400029549

PATIENT
  Age: 59 Year
  Sex: Male
  Weight: 49.887 kg

DRUGS (3)
  1. INLYTA [Suspect]
     Active Substance: AXITINIB
     Dosage: UNK
     Dates: start: 20240228
  2. INLYTA [Suspect]
     Active Substance: AXITINIB
     Dosage: 3MG BID (TWICE A DAY) QD (ONCE DAILY)
  3. INLYTA [Suspect]
     Active Substance: AXITINIB
     Dosage: 2MG BID (TWICE A DAY) QD (ONCE DAILY)

REACTIONS (6)
  - Dehydration [Unknown]
  - Fatigue [Unknown]
  - Nausea [Unknown]
  - Diarrhoea [Not Recovered/Not Resolved]
  - Weight decreased [Unknown]
  - Blood pressure increased [Unknown]

NARRATIVE: CASE EVENT DATE: 20240101
